FAERS Safety Report 24874280 (Version 2)
Quarter: 2025Q1

REPORT INFORMATION
  Report Type: Spontaneous
  Country: BR (occurrence: BR)
  Receive Date: 20250122
  Receipt Date: 20250321
  Transmission Date: 20250409
  Serious: Yes (Hospitalization, Other)
  Sender: VERTEX
  Company Number: BR-VERTEX PHARMACEUTICALS-2025-000735

PATIENT
  Age: 18 Year
  Sex: Male

DRUGS (2)
  1. TRIKAFTA [Suspect]
     Active Substance: ELEXACAFTOR\IVACAFTOR\TEZACAFTOR
     Indication: Cystic fibrosis
     Dosage: TWO TABS IN AM AND ONE TAB IN PM
     Route: 048
     Dates: start: 20241115, end: 20250102
  2. ENALAPRIL [Concomitant]
     Active Substance: ENALAPRIL
     Dosage: 1 TAB IN AM AND 1 TAB IN PM

REACTIONS (9)
  - Acute kidney injury [Unknown]
  - Nephrotic syndrome [Not Recovered/Not Resolved]
  - Glomerulonephritis proliferative [Unknown]
  - Infection [Unknown]
  - Anaemia [Unknown]
  - Electrolyte imbalance [Unknown]
  - Ascites [Unknown]
  - Renal cyst [Unknown]
  - Diarrhoea [Recovered/Resolved]

NARRATIVE: CASE EVENT DATE: 20241220
